FAERS Safety Report 8002896-3 (Version None)
Quarter: 2011Q4

REPORT INFORMATION
  Report Type: 
  Country: None (occurrence: None)
  Receive Date: 20111222
  Receipt Date: 20110223
  Transmission Date: 20120403
  Serious: No
  Sender: FDA-Public Use
  Company Number: US-GLAXOSMITHKLINE-A0915076A

PATIENT
  Age: 81 Year
  Sex: Male

DRUGS (3)
  1. AVODART [Suspect]
     Indication: POLLAKIURIA
     Dosage: 1CAP PER DAY
     Route: 048
     Dates: start: 20090201
  2. UROXATRAL [Concomitant]
  3. NEXIUM [Concomitant]

REACTIONS (1)
  - BREAST PAIN [None]
